FAERS Safety Report 17794540 (Version 1)
Quarter: 2020Q2

REPORT INFORMATION
  Report Type: Spontaneous
  Country: NL (occurrence: NL)
  Receive Date: 20200515
  Receipt Date: 20200515
  Transmission Date: 20200714
  Serious: Yes (Hospitalization, Other)
  Sender: FDA-Public Use
  Company Number: NL-GLAXOSMITHKLINE-NL2019EME240143

PATIENT
  Age: 58 Year
  Sex: Male
  Weight: 80 kg

DRUGS (1)
  1. ACITRETIN. [Suspect]
     Active Substance: ACITRETIN
     Indication: PSORIASIS
     Dosage: 2 DF, QD (CAPSULE)
     Dates: start: 20190325, end: 20190601

REACTIONS (3)
  - Nail disorder [Unknown]
  - Skin fissures [Unknown]
  - Retinal tear [Recovered/Resolved]

NARRATIVE: CASE EVENT DATE: 20190428
